FAERS Safety Report 22331880 (Version 1)
Quarter: 2023Q2

REPORT INFORMATION
  Report Type: Spontaneous
  Country: US (occurrence: US)
  Receive Date: 20230517
  Receipt Date: 20230517
  Transmission Date: 20230722
  Serious: No
  Sender: FDA-Public Use
  Company Number: US-ELI_LILLY_AND_COMPANY-US202305009728

PATIENT
  Sex: Female

DRUGS (1)
  1. FORTEO [Suspect]
     Active Substance: TERIPARATIDE
     Indication: Product used for unknown indication
     Dosage: UNK UNK, UNKNOWN
     Route: 065
     Dates: start: 20230416

REACTIONS (8)
  - Malaise [Unknown]
  - Headache [Unknown]
  - Decreased appetite [Unknown]
  - Pain [Unknown]
  - Influenza [Unknown]
  - Abdominal discomfort [Unknown]
  - Bowel movement irregularity [Unknown]
  - Nausea [Unknown]
